FAERS Safety Report 6702447-7 (Version None)
Quarter: 2010Q2

REPORT INFORMATION
  Report Type: 
  Country: None (occurrence: None)
  Receive Date: 20100429
  Receipt Date: 20100423
  Transmission Date: 20101027
  Serious: Yes (Death, Hospitalization)
  Sender: FDA-Public Use
  Company Number: B0634929C

PATIENT
  Sex: Female

DRUGS (6)
  1. LAPATINIB [Suspect]
     Indication: BREAST CANCER
     Route: 048
     Dates: start: 20100114
  2. TAXOTERE [Suspect]
     Indication: BREAST CANCER
     Dosage: 351.75MG CUMULATIVE DOSE
     Route: 048
     Dates: start: 20100114, end: 20100304
  3. SEROPLEX [Concomitant]
     Indication: ANXIETY
     Route: 048
  4. NORDAZ [Concomitant]
     Indication: ANXIETY
  5. ZOLPIDEM [Concomitant]
     Indication: ANXIETY
     Route: 048
  6. DIFFU-K [Concomitant]
     Route: 048
     Dates: start: 20100225

REACTIONS (2)
  - GENERAL PHYSICAL HEALTH DETERIORATION [None]
  - METASTASES TO CENTRAL NERVOUS SYSTEM [None]
